FAERS Safety Report 4275846-3 (Version None)
Quarter: 2004Q1

REPORT INFORMATION
  Report Type: 
  Country: None (occurrence: None)
  Receive Date: 20040121
  Receipt Date: 20030115
  Transmission Date: 20041129
  Serious: No
  Sender: FDA-Public Use
  Company Number: US-GLAXOSMITHKLINE-A0392522A

PATIENT
  Sex: Female

DRUGS (3)
  1. VALTREX [Suspect]
     Dosage: 500MG TWICE PER DAY
     Route: 048
  2. PREDNISONE [Concomitant]
  3. CHEMOTHERAPY [Concomitant]

REACTIONS (2)
  - BLOOD MAGNESIUM DECREASED [None]
  - HYPOTHYROIDISM [None]
